FAERS Safety Report 6599415-5 (Version None)
Quarter: 2010Q1

REPORT INFORMATION
  Report Type: 
  Country: None (occurrence: None)
  Receive Date: 20100224
  Receipt Date: 20100205
  Transmission Date: 20100710
  Serious: Yes (Other)
  Sender: FDA-Public Use
  Company Number: US-ASTRAZENECA-2010SE05296

PATIENT
  Age: 805 Month
  Sex: Female
  Weight: 75.3 kg

DRUGS (8)
  1. PULMICORT FLEXHALER [Suspect]
     Indication: ASTHMA
     Route: 055
     Dates: start: 20090830
  2. PULMICORT FLEXHALER [Suspect]
     Indication: CHRONIC OBSTRUCTIVE PULMONARY DISEASE
     Route: 055
     Dates: start: 20090830
  3. COMBIVENT [Concomitant]
     Indication: ASTHMA
     Route: 061
  4. COMBIVENT [Concomitant]
     Indication: CHRONIC OBSTRUCTIVE PULMONARY DISEASE
     Route: 061
  5. CARDIZEM [Concomitant]
     Indication: ATRIAL FIBRILLATION
     Route: 048
  6. CARDIZEM [Concomitant]
     Route: 048
  7. LASIX [Concomitant]
     Indication: OEDEMA
  8. DIGOXIN [Concomitant]
     Indication: ATRIAL FIBRILLATION

REACTIONS (1)
  - CATARACT [None]
